FAERS Safety Report 4561457-9 (Version None)
Quarter: 2005Q1

REPORT INFORMATION
  Report Type: 
  Country: None (occurrence: None)
  Receive Date: 20050126
  Receipt Date: 20050123
  Transmission Date: 20050727
  Serious: Yes (Other)
  Sender: FDA-Public Use
  Company Number: PHNU2005DE00659

PATIENT
  Age: 2 Year
  Sex: Male

DRUGS (2)
  1. TRILEPTAL [Suspect]
     Indication: EPILEPSY
     Dosage: GRADUALLY DOSAGE INCREASE
     Route: 048
     Dates: start: 20041101, end: 20041222
  2. TRILEPTAL [Suspect]
     Dosage: 3 ML, BID
     Route: 048
     Dates: start: 20041223

REACTIONS (3)
  - LABORATORY TEST ABNORMAL [None]
  - NEPHROTIC SYNDROME [None]
  - OEDEMA PERIPHERAL [None]
